FAERS Safety Report 4504215-3 (Version None)
Quarter: 2004Q4

REPORT INFORMATION
  Report Type: 
  Country: None (occurrence: None)
  Receive Date: 20041116
  Receipt Date: 20041116
  Transmission Date: 20050328
  Serious: Yes (Other)
  Sender: FDA-Public Use
  Company Number: None

PATIENT
  Age: 45 Year
  Sex: Female
  Weight: 56.6996 kg

DRUGS (1)
  1. DIOVAN [Suspect]
     Indication: HYPERTENSION
     Dosage: 80MG/1X ORAL
     Route: 048
     Dates: start: 20041130, end: 20040823

REACTIONS (19)
  - ABDOMINAL DISTENSION [None]
  - ABDOMINAL PAIN [None]
  - ALOPECIA [None]
  - ARTHRALGIA [None]
  - DEAFNESS [None]
  - DISORIENTATION [None]
  - EAR CONGESTION [None]
  - EPISTAXIS [None]
  - FATIGUE [None]
  - FLATULENCE [None]
  - GENERAL SYMPTOM [None]
  - HEART RATE DECREASED [None]
  - HEPATIC ENZYME INCREASED [None]
  - HYPOTENSION [None]
  - INFLUENZA LIKE ILLNESS [None]
  - MYALGIA [None]
  - NIGHT SWEATS [None]
  - PRURITUS GENERALISED [None]
  - PYREXIA [None]
